FAERS Safety Report 13061166 (Version 3)
Quarter: 2017Q3

REPORT INFORMATION
  Report Type: Spontaneous
  Country: IT (occurrence: IT)
  Receive Date: 20161226
  Receipt Date: 20170725
  Transmission Date: 20171127
  Serious: Yes (Death, Hospitalization)
  Sender: FDA-Public Use
  Company Number: IT-ROCHE-1869565

PATIENT
  Age: 80 Year
  Sex: Female

DRUGS (9)
  1. EBIXA [Concomitant]
     Active Substance: MEMANTINE HYDROCHLORIDE
     Dosage: 20 MG - FILM-COATED TABLETS-ORAL USE BLISTER PACK
     Route: 048
     Dates: start: 20131201, end: 20161213
  2. BENTELAN [Concomitant]
     Active Substance: BETAMETHASONE SODIUM PHOSPHATE
     Dosage: 4 MG/2 ML SOLUTION FOR INJECTION^ 3 X 2 ML VIALS
     Route: 042
     Dates: start: 20161125, end: 20161126
  3. LERCANIDIPINE [Concomitant]
     Active Substance: LERCANIDIPINE
     Indication: ESSENTIAL HYPERTENSION
     Dosage: 10 MG FILM-COATED TABLETS^ 14 TABLETS
     Route: 048
  4. MEMAC [Concomitant]
     Active Substance: DONEPEZIL HYDROCHLORIDE
     Dosage: 5 MG FILM-COATED TABLETS 28 TABLETS
     Route: 048
  5. CIPROXIN [Suspect]
     Active Substance: CIPROFLOXACIN
     Indication: CYSTITIS
     Dosage: 500 MG COATED TABLETS 14 TABLETS
     Route: 048
     Dates: start: 20161127, end: 20161203
  6. ZOVIRAX [Suspect]
     Active Substance: ACYCLOVIR
     Indication: HERPES VIRUS INFECTION
     Dosage: 400 MG/5 ML ORAL SUSPENSION
     Route: 048
     Dates: start: 20161203, end: 20161210
  7. ROCEFIN [Suspect]
     Active Substance: CEFTRIAXONE SODIUM
     Indication: URINARY TRACT INFECTION
     Dosage: 1 VIAL OF POWDER + 1 VIAL OF SOLVENT 10 ML
     Route: 042
     Dates: start: 20161123, end: 20161124
  8. KARVEZIDE [Concomitant]
     Active Substance: HYDROCHLOROTHIAZIDE\IRBESARTAN
     Indication: ESSENTIAL HYPERTENSION
     Dosage: 300 MG/12.5 MG 56 TABLETS IN A BLISTER PACK
     Route: 048
     Dates: start: 20001201, end: 20161213
  9. KLACID [Suspect]
     Active Substance: CLARITHROMYCIN
     Indication: TONSILLITIS
     Dosage: 500 MG COATED TABLETS^ 14 TABLETS
     Route: 048
     Dates: start: 20161203, end: 20161210

REACTIONS (3)
  - Toxic epidermal necrolysis [Not Recovered/Not Resolved]
  - Multiple organ dysfunction syndrome [Fatal]
  - Cardiac arrest [Fatal]

NARRATIVE: CASE EVENT DATE: 20161213
